FAERS Safety Report 13343557 (Version 1)
Quarter: 2017Q1

REPORT INFORMATION
  Report Type: Spontaneous
  Country: US (occurrence: US)
  Receive Date: 20170316
  Receipt Date: 20170316
  Transmission Date: 20170428
  Serious: No
  Sender: FDA-Public Use
  Company Number: US-009507513-1703USA003020

PATIENT
  Sex: Female

DRUGS (3)
  1. TRAMADOL HYDROCHLORIDE. [Concomitant]
     Active Substance: TRAMADOL HYDROCHLORIDE
     Indication: PAIN
  2. BELSOMRA [Suspect]
     Active Substance: SUVOREXANT
     Indication: INSOMNIA
     Dosage: 20 MG, QD
     Route: 048
     Dates: start: 201702
  3. HORMONES (UNSPECIFIED) [Concomitant]
     Active Substance: UNSPECIFIED INGREDIENT
     Route: 065

REACTIONS (4)
  - Underdose [Unknown]
  - Drug dose omission [Unknown]
  - Wrong technique in product usage process [Unknown]
  - Insomnia [Unknown]
